FAERS Safety Report 7758684-6 (Version None)
Quarter: 2011Q3

REPORT INFORMATION
  Report Type: 
  Country: None (occurrence: None)
  Receive Date: 20110919
  Receipt Date: 20100525
  Transmission Date: 20111222
  Serious: No
  Sender: FDA-Public Use
  Company Number: US-BAYER-201024442NA

PATIENT
  Sex: Female

DRUGS (2)
  1. MIRENA [Suspect]
     Dosage: 20 ?G, CONT
     Route: 015
  2. MIRENA [Suspect]
     Indication: PRODUCT USED FOR UNKNOWN INDICATION
     Dosage: 20 ?G, CONT
     Route: 015

REACTIONS (5)
  - DEVICE EXPULSION [None]
  - AMENORRHOEA [None]
  - OVARIAN CYST RUPTURED [None]
  - MENORRHAGIA [None]
  - OVARIAN CYST [None]
